FAERS Safety Report 8718043 (Version 4)
Quarter: 2012Q4

REPORT INFORMATION
  Report Type: Report from Study
  Country: AU (occurrence: AU)
  Receive Date: 20120810
  Receipt Date: 20120828
  Transmission Date: 20130627
  Serious: Yes (Other)
  Sender: FDA-Public Use
  Company Number: AU-JNJFOC-20120703894

PATIENT
  Sex: Female

DRUGS (4)
  1. STELARA [Suspect]
     Indication: PSORIASIS
     Route: 058
     Dates: start: 20120814
  2. STELARA [Suspect]
     Indication: PSORIASIS
     Route: 058
     Dates: start: 20120706
  3. CELAPRAM [Concomitant]
     Indication: DEPRESSION
  4. CELAPRAM [Concomitant]
     Indication: ANXIETY

REACTIONS (8)
  - Convulsion [Unknown]
  - Oedema peripheral [Unknown]
  - Vision blurred [Unknown]
  - Dizziness [Unknown]
  - Pain [Unknown]
  - Back pain [Unknown]
  - Myalgia [Unknown]
  - Arthralgia [Unknown]
